FAERS Safety Report 21384748 (Version 1)
Quarter: 2022Q3

REPORT INFORMATION
  Report Type: Spontaneous
  Country: US (occurrence: US)
  Receive Date: 20220928
  Receipt Date: 20220928
  Transmission Date: 20221027
  Serious: No
  Sender: FDA-Public Use
  Company Number: US-Melinta Therapeutics, LLC-US-MLNT-21-00104

PATIENT
  Age: 67 Year

DRUGS (1)
  1. ORBACTIV [Suspect]
     Active Substance: ORITAVANCIN
     Indication: Product used for unknown indication
     Route: 041
     Dates: start: 20210824, end: 20210824

REACTIONS (1)
  - Vancomycin infusion reaction [Unknown]

NARRATIVE: CASE EVENT DATE: 20210824
